FAERS Safety Report 8207744-4 (Version None)
Quarter: 2012Q1

REPORT INFORMATION
  Report Type: 
  Country: None (occurrence: None)
  Receive Date: 20120314
  Receipt Date: 20120309
  Transmission Date: 20120608
  Serious: No
  Sender: FDA-Public Use
  Company Number: US-TEVA-327416USA

PATIENT
  Sex: Female

DRUGS (2)
  1. PROAIR HFA [Suspect]
     Route: 055
  2. SERETIDE                           /01420901/ [Concomitant]

REACTIONS (2)
  - DYSPNOEA [None]
  - CHEST DISCOMFORT [None]
